FAERS Safety Report 4402247-7 (Version None)
Quarter: 2004Q3

REPORT INFORMATION
  Report Type: 
  Country: None (occurrence: None)
  Receive Date: 20040716
  Receipt Date: 19990527
  Transmission Date: 20050211
  Serious: No
  Sender: FDA-Public Use
  Company Number: 02100-JPN-99-0056

PATIENT
  Age: 69 Year
  Sex: Male

DRUGS (5)
  1. CILOSTAZOL [Suspect]
     Dosage: 200 MG ORAL
     Route: 048
     Dates: start: 19981218, end: 19990209
  2. ASPIRIN DIALMINATE [Concomitant]
  3. ISOSORBIDE MONONITRATE [Concomitant]
  4. TEPRENONE [Concomitant]
  5. ISOSORBIDE DINITRATE [Concomitant]

REACTIONS (4)
  - ELECTROCARDIOGRAM ST SEGMENT DEPRESSION [None]
  - PALPITATIONS [None]
  - TACHYCARDIA [None]
  - VENTRICULAR ARRHYTHMIA [None]
